FAERS Safety Report 14510361 (Version 2)
Quarter: 2022Q1

REPORT INFORMATION
  Report Type: Spontaneous
  Country: ES (occurrence: ES)
  Receive Date: 20180209
  Receipt Date: 20220315
  Transmission Date: 20220423
  Serious: Yes (Hospitalization, Other)
  Sender: FDA-Public Use
  Company Number: ES-AUROBINDO-AUR-APL-2018-005493

PATIENT
  Age: 73 Year
  Sex: Female
  Weight: 77.7 kg

DRUGS (4)
  1. SIMVASTATIN [Suspect]
     Active Substance: SIMVASTATIN
     Indication: Hypercholesterolaemia
     Dosage: 10 MILLIGRAM, ONCE A DAY (1 VEZ AL DIA)
     Route: 048
     Dates: start: 20130101, end: 20170417
  2. SIMVASTATIN [Suspect]
     Active Substance: SIMVASTATIN
     Dosage: 10 MILLIGRAM, ONCE A DAY (UNA VEZ AL D?A)
     Route: 048
     Dates: start: 20170614, end: 20171018
  3. LEVOFLOXACIN [Suspect]
     Active Substance: LEVOFLOXACIN
     Indication: Bronchitis
     Dosage: 500 MILLIGRAM, ONCE A DAY
     Route: 048
     Dates: start: 201710, end: 201710
  4. FOSTER [Suspect]
     Active Substance: BECLOMETHASONE\FORMOTEROL
     Indication: Bronchitis
     Dosage: 1 DOSAGE FORM, TWO TIMES A DAY
     Route: 055
     Dates: start: 20170710, end: 20171018

REACTIONS (1)
  - Neutropenia [Recovered/Resolved]

NARRATIVE: CASE EVENT DATE: 20171016
